FAERS Safety Report 5169110-8 (Version None)
Quarter: 2006Q4

REPORT INFORMATION
  Report Type: 
  Country: None (occurrence: None)
  Receive Date: 20061201
  Receipt Date: 20061120
  Transmission Date: 20070319
  Serious: Yes (Hospitalization, Other)
  Sender: FDA-Public Use
  Company Number: 2006BI014927

PATIENT
  Age: 59 Year
  Sex: Male

DRUGS (14)
  1. AVONEX [Suspect]
     Indication: MULTIPLE SCLEROSIS
     Dosage: 30 UG; QW; IM
     Route: 030
  2. AVONEX [Suspect]
     Indication: MULTIPLE SCLEROSIS
     Dosage: 30 UG; QW; IM
     Route: 030
     Dates: end: 20050101
  3. AVONEX [Suspect]
     Indication: MULTIPLE SCLEROSIS
     Dosage: 30 UG; QW; IM
     Route: 030
     Dates: start: 20050101
  4. REBIF [Concomitant]
  5. CELEBREX [Concomitant]
  6. FLUOXETINE [Concomitant]
  7. INDERAL [Concomitant]
  8. KADIAN [Concomitant]
  9. LAMICTAL [Concomitant]
  10. NAMENDA [Concomitant]
  11. PROVIGIL [Concomitant]
  12. RITALIN [Concomitant]
  13. WELLBUTRIN SR [Concomitant]
  14. ZOMETA [Concomitant]

REACTIONS (9)
  - ANAL CANCER METASTATIC [None]
  - ARTHRALGIA [None]
  - BLOOD CHOLESTEROL INCREASED [None]
  - CONFUSIONAL STATE [None]
  - GASTROOESOPHAGEAL REFLUX DISEASE [None]
  - HYPERTONIC BLADDER [None]
  - LUNG NEOPLASM MALIGNANT [None]
  - METASTASES TO BONE [None]
  - METASTASES TO LYMPH NODES [None]
